FAERS Safety Report 9189540 (Version 1)
Quarter: 2013Q1

REPORT INFORMATION
  Report Type: Spontaneous
  Country: US (occurrence: US)
  Receive Date: 20130326
  Receipt Date: 20130326
  Transmission Date: 20140127
  Serious: Yes (Other)
  Sender: FDA-Public Use
  Company Number: US-ELI_LILLY_AND_COMPANY-US201303006735

PATIENT
  Sex: Female

DRUGS (3)
  1. HUMULIN NPH [Suspect]
     Indication: DIABETES MELLITUS
     Dosage: 30 U, EACH MORNING
  2. HUMULIN NPH [Suspect]
     Dosage: 5 U, EACH EVENING
  3. HUMULIN REGULAR [Suspect]
     Indication: DIABETES MELLITUS
     Dosage: 8 U, PRN

REACTIONS (4)
  - Renal impairment [Not Recovered/Not Resolved]
  - Dehydration [Unknown]
  - Blood glucose increased [Unknown]
  - Cardiac disorder [Unknown]
